FAERS Safety Report 8053301-2 (Version None)
Quarter: 2012Q1

REPORT INFORMATION
  Report Type: 
  Country: None (occurrence: None)
  Receive Date: 20120118
  Receipt Date: 20120113
  Transmission Date: 20120608
  Serious: Yes (Life-Threatening, Hospitalization)
  Sender: FDA-Public Use
  Company Number: US-ROCHE-1029728

PATIENT
  Sex: Male
  Weight: 165.71 kg

DRUGS (19)
  1. HYDRALAZINE HCL [Concomitant]
  2. DEMADEX [Concomitant]
  3. ASPIRIN [Concomitant]
  4. POTASSIUM CHLORIDE [Concomitant]
  5. XOLAIR [Suspect]
     Indication: ASTHMA
     Route: 058
     Dates: start: 20070621
  6. LIPITOR [Concomitant]
  7. CITALOPRAM [Concomitant]
  8. INSPRA [Concomitant]
  9. NIASPAN [Concomitant]
  10. COREG [Concomitant]
  11. GLUCOPHAGE [Concomitant]
  12. FLOVENT [Concomitant]
  13. PATANOL [Concomitant]
  14. FISH OIL [Concomitant]
  15. SINGULAIR [Concomitant]
  16. ADVAIR DISKUS 100/50 [Concomitant]
  17. LISINOPRIL [Concomitant]
  18. XOPENEX [Concomitant]
  19. JANUVIA [Concomitant]

REACTIONS (1)
  - MYOCARDIAL INFARCTION [None]
